FAERS Safety Report 9945999 (Version 1)
Quarter: 2014Q1

REPORT INFORMATION
  Report Type: Spontaneous
  Country: US (occurrence: US)
  Receive Date: 20140303
  Receipt Date: 20140303
  Transmission Date: 20141002
  Serious: No
  Sender: FDA-Public Use
  Company Number: US-AMGEN-USASP2013069981

PATIENT
  Age: 49 Year
  Sex: Male
  Weight: 92.97 kg

DRUGS (5)
  1. ENBREL [Suspect]
     Indication: PRODUCT USED FOR UNKNOWN INDICATION
     Dosage: 50 MG, QWK
     Route: 058
  2. ROXICODONE [Concomitant]
     Dosage: 15 MG, UNK
  3. LORAZEPAM [Concomitant]
     Dosage: 2 MG, UNK
  4. MELATONIN [Concomitant]
     Dosage: 3 MG, UNK
  5. VALERIAN ROOT                      /01561603/ [Concomitant]
     Dosage: 445 MG, UNK

REACTIONS (7)
  - Drug effect decreased [Unknown]
  - Arthralgia [Unknown]
  - Pain in extremity [Unknown]
  - Musculoskeletal pain [Unknown]
  - Joint stiffness [Unknown]
  - Weight increased [Unknown]
  - Musculoskeletal stiffness [Unknown]
